FAERS Safety Report 8508893-3 (Version None)
Quarter: 2012Q3

REPORT INFORMATION
  Report Type: 
  Country: None (occurrence: None)
  Receive Date: 20120713
  Receipt Date: 20110920
  Transmission Date: 20120928
  Serious: Yes (Hospitalization)
  Sender: FDA-Public Use
  Company Number: IE-EISAI INC-E2080-00401-SPO-GB

PATIENT
  Age: 28 Month
  Sex: Male
  Weight: 11.5 kg

DRUGS (7)
  1. INOVELON [Suspect]
     Route: 048
     Dates: start: 20110701, end: 20110804
  2. INOVELON [Suspect]
     Indication: EPILEPSY
     Route: 048
     Dates: start: 20110601, end: 20110701
  3. LANSOPRAZOLE [Concomitant]
     Route: 048
  4. DIAZEPAM [Concomitant]
     Route: 048
     Dates: start: 20110601
  5. INOVELON [Suspect]
     Route: 048
     Dates: start: 20110805, end: 20110807
  6. VALPROATE SODIUM [Concomitant]
     Indication: EPILEPSY
     Route: 048
     Dates: start: 20110301
  7. RANITIDINE [Concomitant]
     Route: 048

REACTIONS (5)
  - MUSCLE RIGIDITY [None]
  - CONVULSION [None]
  - STATUS EPILEPTICUS [None]
  - OFF LABEL USE [None]
  - HYPERTONIA [None]
